FAERS Safety Report 7355656-0 (Version None)
Quarter: 2011Q1

REPORT INFORMATION
  Report Type: 
  Country: None (occurrence: None)
  Receive Date: 20110316
  Receipt Date: 20110314
  Transmission Date: 20110831
  Serious: Yes (Hospitalization)
  Sender: FDA-Public Use
  Company Number: IT-ROXANE LABORATORIES, INC.-2011-RO-00301RO

PATIENT
  Age: 74 Year
  Sex: Female

DRUGS (3)
  1. AMITRIPTYLINE HCL [Suspect]
     Indication: DEPRESSED MOOD
     Dosage: 20 MG
  2. CLARITHROMYCIN [Suspect]
     Indication: BRONCHITIS
     Dosage: 1000 MG
  3. LORAZEPAM [Suspect]
     Indication: DEPRESSED MOOD
     Dosage: 1 MG

REACTIONS (2)
  - DELIRIUM [None]
  - STATUS EPILEPTICUS [None]
